FAERS Safety Report 7757725-X (Version None)
Quarter: 2011Q3

REPORT INFORMATION
  Report Type: 
  Country: None (occurrence: None)
  Receive Date: 20110916
  Receipt Date: 20110905
  Transmission Date: 20111222
  Serious: No
  Sender: FDA-Public Use
  Company Number: US-B.I. PHARMACEUTICALS,INC./RIDGEFIELD-2011-BP-21436BP

PATIENT
  Age: 16 Year
  Sex: Female

DRUGS (2)
  1. ZANTAC 75 [Suspect]
     Indication: GASTRITIS
     Dosage: 150 MG
     Route: 048
     Dates: start: 20110601, end: 20110801
  2. ZANTAC 75 [Suspect]
     Indication: ABDOMINAL PAIN UPPER

REACTIONS (2)
  - ABDOMINAL PAIN UPPER [None]
  - INGROWING NAIL [None]
